FAERS Safety Report 25282092 (Version 2)
Quarter: 2025Q2

REPORT INFORMATION
  Report Type: Spontaneous
  Country: US (occurrence: US)
  Receive Date: 20250508
  Receipt Date: 20250515
  Transmission Date: 20250716
  Serious: No
  Sender: TEVA
  Company Number: US-TEVA-VS-3326194

PATIENT
  Age: 61 Year
  Sex: Female

DRUGS (1)
  1. ZOLPIDEM TARTRATE [Suspect]
     Active Substance: ZOLPIDEM TARTRATE
     Indication: Insomnia
     Dosage: DAILY FOR THE PAST FIVE YEARS, STARTED TEVA FORMULATION ABOUT YEAR AGO EVERY NIGHT
     Route: 048

REACTIONS (6)
  - Dizziness [Unknown]
  - Drug ineffective [Unknown]
  - Balance disorder [Unknown]
  - Incorrect product administration duration [Unknown]
  - Disorientation [Unknown]
  - Hangover [Unknown]
